FAERS Safety Report 7495085-2 (Version None)
Quarter: 2011Q2

REPORT INFORMATION
  Report Type: 
  Country: None (occurrence: None)
  Receive Date: 20110520
  Receipt Date: 20110427
  Transmission Date: 20111010
  Serious: Yes (Hospitalization, Disabling)
  Sender: FDA-Public Use
  Company Number: DK-BAYER-201037400GPV

PATIENT
  Age: 37 Year
  Sex: Male
  Weight: 58 kg

DRUGS (11)
  1. PREDNISOLONE [Concomitant]
  2. VENOFER [Concomitant]
     Dosage: 20 MG/ML
     Route: 042
  3. METOPROLOL SUCCINATE [Concomitant]
  4. GADOLINIUM IN UNSPECIFIED DRUG [Suspect]
     Indication: NUCLEAR MAGNETIC RESONANCE IMAGING
     Dosage: UNK
     Dates: start: 20010601, end: 20010601
  5. INSULIN [Concomitant]
  6. DILTIAZEM [Concomitant]
  7. OMNISCAN [Suspect]
     Indication: SCAN WITH CONTRAST
     Route: 042
     Dates: start: 20020429, end: 20020429
  8. CALCIUMACETAT [Concomitant]
  9. OMEPRAZOLE [Concomitant]
  10. ASPIRIN [Concomitant]
  11. LEVOTHYROXINE SODIUM [Concomitant]

REACTIONS (11)
  - ERYTHEMA [None]
  - JOINT CONTRACTURE [None]
  - ABASIA [None]
  - INJURY [None]
  - NEPHROGENIC SYSTEMIC FIBROSIS [None]
  - SKIN DISORDER [None]
  - OEDEMA PERIPHERAL [None]
  - PAIN IN EXTREMITY [None]
  - JOINT RANGE OF MOTION DECREASED [None]
  - FEELING HOT [None]
  - DEFORMITY [None]
